FAERS Safety Report 16127242 (Version 2)
Quarter: 2019Q3

REPORT INFORMATION
  Report Type: Spontaneous
  Country: SG (occurrence: SG)
  Receive Date: 20190328
  Receipt Date: 20190927
  Transmission Date: 20191004
  Serious: Yes (Other)
  Sender: FDA-Public Use
  Company Number: SG-MACLEODS PHARMACEUTICALS US LTD-MAC2019020633

PATIENT

DRUGS (2)
  1. QUETIAPINE 100 MG [Suspect]
     Active Substance: QUETIAPINE
     Indication: BIPOLAR DISORDER
     Dosage: 100 MILLIGRAM IMMEDIATE RELEASE AT NIGHT AT DAY 1, TOOK ONLY A DOSE
     Route: 048
     Dates: start: 20160318
  2. QUETIAPINE 100 MG [Suspect]
     Active Substance: QUETIAPINE
     Indication: MANIA

REACTIONS (8)
  - Neck pain [Unknown]
  - Haematemesis [Unknown]
  - Vertigo [Recovered/Resolved]
  - Dizziness [Recovered/Resolved]
  - Headache [Unknown]
  - Epistaxis [Unknown]
  - Skull fracture [Unknown]
  - Fall [Unknown]

NARRATIVE: CASE EVENT DATE: 2006
